FAERS Safety Report 13552764 (Version 5)
Quarter: 2018Q4

REPORT INFORMATION
  Report Type: Spontaneous
  Country: US (occurrence: US)
  Receive Date: 20170517
  Receipt Date: 20181211
  Transmission Date: 20190204
  Serious: Yes (Other)
  Sender: FDA-Public Use
  Company Number: US-ASTRAZENECA-2017SE49944

PATIENT
  Age: 64 Year
  Sex: Female
  Weight: 85.3 kg

DRUGS (48)
  1. NEXIUM [Suspect]
     Active Substance: ESOMEPRAZOLE MAGNESIUM
     Indication: GASTROOESOPHAGEAL REFLUX DISEASE
     Dosage: 20 MG
     Route: 048
     Dates: start: 1992, end: 2009
  2. NEXIUM [Suspect]
     Active Substance: ESOMEPRAZOLE MAGNESIUM
     Indication: DYSPEPSIA
     Dosage: 20 MG
     Route: 048
     Dates: start: 1992, end: 2009
  3. ALBUTEROL. [Concomitant]
     Active Substance: ALBUTEROL
     Dosage: 2.5 MG/3 ML
  4. GABAPENTIN. [Concomitant]
     Active Substance: GABAPENTIN
     Route: 048
  5. ZOFRAN [Concomitant]
     Active Substance: ONDANSETRON HYDROCHLORIDE
  6. BACLOFEN. [Concomitant]
     Active Substance: BACLOFEN
     Route: 048
  7. NEXIUM [Suspect]
     Active Substance: ESOMEPRAZOLE MAGNESIUM
     Indication: GASTROOESOPHAGEAL REFLUX DISEASE
     Route: 048
     Dates: start: 2010, end: 2016
  8. ALENDRONATE SODIUM. [Concomitant]
     Active Substance: ALENDRONATE SODIUM
     Route: 048
  9. AMITIZA [Concomitant]
     Active Substance: LUBIPROSTONE
     Dosage: 24 MCG DAILY
     Route: 048
  10. PRO BIOTIC ACIRLOPHILUS BIOBEADS [Concomitant]
     Dosage: TAKE 1 ONCE DAILY
  11. AMOXICILLIN. [Concomitant]
     Active Substance: AMOXICILLIN
     Route: 065
  12. GLYBURIDE. [Concomitant]
     Active Substance: GLYBURIDE
     Route: 048
  13. CLARITIN [Concomitant]
     Active Substance: LORATADINE
     Route: 048
  14. ROPINIROLE HYDROCHLORIDE. [Concomitant]
     Active Substance: ROPINIROLE HYDROCHLORIDE
     Route: 048
  15. BACLOFEN. [Concomitant]
     Active Substance: BACLOFEN
     Route: 048
  16. CALCIUM CITRATE [Concomitant]
     Active Substance: CALCIUM CITRATE
     Dosage: 1 DOSE
     Route: 048
  17. ACETAMINOPHEN CODEINE [Concomitant]
     Active Substance: ACETAMINOPHEN\CODEINE PHOSPHATE
     Dosage: 300-30MG
     Route: 048
     Dates: start: 20181113
  18. NEXIUM [Suspect]
     Active Substance: ESOMEPRAZOLE MAGNESIUM
     Indication: DYSPEPSIA
     Route: 048
  19. LEVOTHYROXINE. [Concomitant]
     Active Substance: LEVOTHYROXINE
     Dosage: 25 MCG 1 DAILY
     Route: 048
  20. LIDODERM [Concomitant]
     Active Substance: LIDOCAINE
     Route: 062
  21. ASPIRIN. [Concomitant]
     Active Substance: ASPIRIN
     Route: 048
  22. ZOCOR [Concomitant]
     Active Substance: SIMVASTATIN
     Dosage: 40.0MG ONCE/SINGLE ADMINISTRATION
     Route: 048
  23. DICLOFENAC [Concomitant]
     Active Substance: DICLOFENAC
     Route: 065
  24. INVOKANA [Concomitant]
     Active Substance: CANAGLIFLOZIN
     Route: 048
  25. LANTUS SOLOSTAR [Concomitant]
     Active Substance: INSULIN GLARGINE
     Dosage: 100 UNITS/ML 100 UNIT/ML (3 MI) S10: 20 UNITS PER DAY
  26. MUCINEX [Concomitant]
     Active Substance: GUAIFENESIN
  27. FLONASE [Concomitant]
     Active Substance: FLUTICASONE PROPIONATE
     Dosage: 50 MCG EACH NOSTRIL ONCE DAILY
     Route: 045
  28. FUROSEMIDE. [Concomitant]
     Active Substance: FUROSEMIDE
     Route: 065
  29. TYLENOL [Concomitant]
     Active Substance: ACETAMINOPHEN
     Indication: PAIN
     Dosage: 300-30 MG, TAKE 1 EVERY 4-6 HOURS AS NEEDED FOR PAIN
     Route: 048
  30. LOSARTAN POTASSIUM. [Concomitant]
     Active Substance: LOSARTAN POTASSIUM
     Route: 048
  31. JANUVIA [Concomitant]
     Active Substance: SITAGLIPTIN PHOSPHATE
     Route: 048
  32. CIPRO [Concomitant]
     Active Substance: CIPROFLOXACIN HYDROCHLORIDE
     Route: 048
  33. DIFLUCAN [Concomitant]
     Active Substance: FLUCONAZOLE
     Dosage: 150 MG EVERY THIRD DAY
     Route: 048
  34. FOSAMAX [Concomitant]
     Active Substance: ALENDRONATE SODIUM
     Route: 048
  35. MORPHINE SULFATE. [Concomitant]
     Active Substance: MORPHINE SULFATE
  36. CYCLOBENZAPRINE HYDROCHLORIDE. [Concomitant]
     Active Substance: CYCLOBENZAPRINE HYDROCHLORIDE
     Route: 048
     Dates: start: 20181113
  37. NEXIUM [Suspect]
     Active Substance: ESOMEPRAZOLE MAGNESIUM
     Indication: DYSPEPSIA
     Route: 048
     Dates: start: 2010, end: 2016
  38. DETROL LA [Concomitant]
     Active Substance: TOLTERODINE TARTRATE
     Route: 048
  39. BACTRIUM [Concomitant]
  40. ROBAXIN [Concomitant]
     Active Substance: METHOCARBAMOL
     Route: 048
  41. ORPHENADRINE CITRATE. [Concomitant]
     Active Substance: ORPHENADRINE CITRATE
     Route: 065
  42. NORCO [Concomitant]
     Active Substance: ACETAMINOPHEN\HYDROCODONE BITARTRATE
     Route: 065
  43. IRBESARTAN. [Concomitant]
     Active Substance: IRBESARTAN
     Route: 048
     Dates: start: 20181113
  44. NEXIUM [Suspect]
     Active Substance: ESOMEPRAZOLE MAGNESIUM
     Indication: GASTROOESOPHAGEAL REFLUX DISEASE
     Route: 048
  45. SIMVASTATIN. [Concomitant]
     Active Substance: SIMVASTATIN
     Route: 048
  46. VITAMIN D3 [Concomitant]
     Active Substance: CHOLECALCIFEROL
     Dosage: 50,000 UNITS, 1 TABLET EVERY WEEK
     Route: 048
  47. BACTRIN DS TABLET 800-160 MG [Concomitant]
     Dosage: 800-160 MG SIG; TWICE A DAY
     Route: 048
  48. IBUPROFEN. [Concomitant]
     Active Substance: IBUPROFEN
     Route: 065

REACTIONS (4)
  - Renal disorder [Unknown]
  - Chronic kidney disease [Not Recovered/Not Resolved]
  - Renal failure [Not Recovered/Not Resolved]
  - Nephrogenic anaemia [Not Recovered/Not Resolved]

NARRATIVE: CASE EVENT DATE: 2011
